FAERS Safety Report 4296605-1 (Version None)
Quarter: 2004Q1

REPORT INFORMATION
  Report Type: 
  Country: None (occurrence: None)
  Receive Date: 20040126
  Receipt Date: 20030826
  Transmission Date: 20041129
  Serious: No
  Sender: FDA-Public Use
  Company Number: USA030845422

PATIENT
  Age: 53 Year
  Sex: Male

DRUGS (4)
  1. STRATTERA [Suspect]
     Indication: ATTENTION DEFICIT/HYPERACTIVITY DISORDER
     Dosage: 80 MG/DAY
     Dates: start: 20030601
  2. DIAZEPAM [Concomitant]
  3. NEXIUM [Concomitant]
  4. VIOXX [Concomitant]

REACTIONS (2)
  - ERECTILE DYSFUNCTION [None]
  - ORGASMIC SENSATION DECREASED [None]
